FAERS Safety Report 16874175 (Version 2)
Quarter: 2019Q4

REPORT INFORMATION
  Report Type: Spontaneous
  Country: JP (occurrence: JP)
  Receive Date: 20191001
  Receipt Date: 20191001
  Transmission Date: 20200122
  Serious: Yes (Death)
  Sender: FDA-Public Use
  Company Number: PHJP2019JP012770

PATIENT
  Age: 61 Year
  Sex: Male

DRUGS (2)
  1. CICLOSPORIN [Suspect]
     Active Substance: CYCLOSPORINE
     Indication: PEMPHIGOID
     Dosage: UNK
     Route: 065
  2. AZANIN [Concomitant]
     Active Substance: AZATHIOPRINE
     Indication: PEMPHIGOID
     Dosage: UNK
     Route: 065

REACTIONS (8)
  - Product use in unapproved indication [Unknown]
  - Rash [Fatal]
  - Disease progression [Fatal]
  - Pneumonia [Fatal]
  - Mycobacterial infection [Fatal]
  - Pemphigoid [Fatal]
  - Immunosuppressant drug level decreased [Fatal]
  - Drug level decreased [Fatal]
